FAERS Safety Report 16375302 (Version 4)
Quarter: 2019Q3

REPORT INFORMATION
  Report Type: Spontaneous
  Country: CA (occurrence: CA)
  Receive Date: 20190531
  Receipt Date: 20190913
  Transmission Date: 20191004
  Serious: Yes (Hospitalization, Other)
  Sender: FDA-Public Use
  Company Number: CA-CELLTRION INC.-2019CA020016

PATIENT

DRUGS (9)
  1. RABEPRAZOLE [Concomitant]
     Active Substance: RABEPRAZOLE
     Dosage: UNK
  2. INFLECTRA [Suspect]
     Active Substance: INFLIXIMAB-DYYB
     Dosage: 10 MG/KG, WEEK 2 , 6, THEN EVERY 8 WEEKS
     Route: 042
     Dates: start: 20190324
  3. LAX A DAY PHARMA [Concomitant]
     Dosage: UNK
  4. INFLECTRA [Suspect]
     Active Substance: INFLIXIMAB-DYYB
     Indication: COLITIS ULCERATIVE
     Dosage: 10 MG/KG, WEEK 2 , 6, THEN EVERY 8 WEEKS
     Route: 042
     Dates: start: 20190322
  5. INFLECTRA [Suspect]
     Active Substance: INFLIXIMAB-DYYB
     Dosage: 10 MG/KG, WEEK 2 , 6, THEN EVERY 8 WEEKS
     Route: 042
     Dates: start: 20190408
  6. PREDNISONE. [Concomitant]
     Active Substance: PREDNISONE
     Indication: COLITIS ULCERATIVE
     Dosage: 50 MG, UNK (TAPERING NOW)
     Route: 048
  7. VITAMINS NOS [Concomitant]
     Active Substance: VITAMINS
     Dosage: UNK
     Route: 065
  8. INFLECTRA [Suspect]
     Active Substance: INFLIXIMAB-DYYB
     Dosage: 10 MG/KG, WEEK 2 , 6, THEN EVERY 8 WEEKS
     Dates: start: 20190513
  9. INFLECTRA [Suspect]
     Active Substance: INFLIXIMAB-DYYB
     Dosage: 10 MG/KG, WEEK 2,6, THEN EVERY 8 WEEKS
     Route: 042
     Dates: start: 20190709

REACTIONS (17)
  - Nausea [Not Recovered/Not Resolved]
  - Vomiting [Not Recovered/Not Resolved]
  - Pruritus [Unknown]
  - Vomiting [Recovered/Resolved]
  - Abdominal pain [Unknown]
  - Drug ineffective [Unknown]
  - Nausea [Recovered/Resolved]
  - Headache [Unknown]
  - Blood pressure fluctuation [Unknown]
  - Weight increased [Recovered/Resolved]
  - Clostridium difficile infection [Unknown]
  - Acne [Unknown]
  - Malaise [Unknown]
  - Diarrhoea [Not Recovered/Not Resolved]
  - Off label use [Unknown]
  - Incorrect dose administered [Recovered/Resolved]
  - Rash pruritic [Recovering/Resolving]

NARRATIVE: CASE EVENT DATE: 201904
